FAERS Safety Report 22718018 (Version 5)
Quarter: 2025Q2

REPORT INFORMATION
  Report Type: Spontaneous
  Country: CA (occurrence: CA)
  Receive Date: 20230718
  Receipt Date: 20250422
  Transmission Date: 20250716
  Serious: Yes (Other)
  Sender: PFIZER
  Company Number: CA-PFIZER INC-PV202200017399

PATIENT
  Age: 57 Year
  Sex: Female

DRUGS (2)
  1. IBRANCE [Suspect]
     Active Substance: PALBOCICLIB
     Indication: Breast cancer metastatic
     Route: 048
     Dates: start: 20220713, end: 2025
  2. FULVESTRANT [Concomitant]
     Active Substance: FULVESTRANT

REACTIONS (10)
  - Thyroid neoplasm [Unknown]
  - Knee arthroplasty [Unknown]
  - Gallbladder operation [Unknown]
  - Tenoplasty [Recovering/Resolving]
  - Pulmonary thrombosis [Not Recovered/Not Resolved]
  - Hypertension [Unknown]
  - Neuropathy peripheral [Unknown]
  - White blood cell count decreased [Unknown]
  - Injection related reaction [Unknown]
  - Dyspnoea [Unknown]

NARRATIVE: CASE EVENT DATE: 20230901
